FAERS Safety Report 8197664-6 (Version None)
Quarter: 2012Q1

REPORT INFORMATION
  Report Type: 
  Country: None (occurrence: None)
  Receive Date: 20120309
  Receipt Date: 20120306
  Transmission Date: 20120608
  Serious: Yes (Other)
  Sender: FDA-Public Use
  Company Number: FR-PFIZER INC-2012060335

PATIENT
  Sex: Male

DRUGS (2)
  1. IBUPROFEN [Suspect]
     Dosage: UNK
  2. CEPHALOSPORINS AND RELATED SUBSTANCES [Suspect]
     Dosage: UNK

REACTIONS (2)
  - PSEUDOMEMBRANOUS COLITIS [None]
  - DUODENAL ULCER HAEMORRHAGE [None]
